FAERS Safety Report 20818387 (Version 1)
Quarter: 2022Q2

REPORT INFORMATION
  Report Type: Report from Study
  Country: US (occurrence: US)
  Receive Date: 20220512
  Receipt Date: 20220512
  Transmission Date: 20220721
  Serious: Yes (Hospitalization)
  Sender: FDA-Public Use
  Company Number: US-BAYER-2022A055033

PATIENT
  Age: 50 Year
  Sex: Female
  Weight: 83.9 kg

DRUGS (8)
  1. ADEMPAS [Suspect]
     Active Substance: RIOCIGUAT
     Indication: Pulmonary arterial hypertension
     Dosage: UNK
     Dates: start: 20220124
  2. ADEMPAS [Suspect]
     Active Substance: RIOCIGUAT
     Indication: Pulmonary arterial hypertension
     Dosage: 1.5 MG, TID
     Route: 048
     Dates: start: 2022, end: 2022
  3. ADEMPAS [Suspect]
     Active Substance: RIOCIGUAT
     Indication: Pulmonary arterial hypertension
     Dosage: 0.5 MG
  4. ADEMPAS [Suspect]
     Active Substance: RIOCIGUAT
     Indication: Pulmonary arterial hypertension
     Dosage: 0.5 MG, TID
     Route: 048
  5. ADEMPAS [Suspect]
     Active Substance: RIOCIGUAT
     Indication: Pulmonary arterial hypertension
     Dosage: 1 MG, TID
  6. ELIQUIS [Concomitant]
     Active Substance: APIXABAN
     Dosage: UNK
  7. OXYGEN [Concomitant]
     Active Substance: OXYGEN
     Dosage: UNK
  8. OXYGEN [Concomitant]
     Active Substance: OXYGEN
     Dosage: 5 L

REACTIONS (12)
  - Hypervolaemia [None]
  - Fluid retention [None]
  - Hypotension [None]
  - Asthenia [None]
  - Dyspnoea [None]
  - Inappropriate schedule of product administration [None]
  - Chest discomfort [None]
  - Dizziness [None]
  - Flushing [None]
  - Dry skin [None]
  - Hospitalisation [None]
  - Fatigue [None]

NARRATIVE: CASE EVENT DATE: 20220101
